FAERS Safety Report 6544742-0 (Version None)
Quarter: 2010Q1

REPORT INFORMATION
  Report Type: 
  Country: None (occurrence: None)
  Receive Date: 20100115
  Receipt Date: 20100107
  Transmission Date: 20100710
  Serious: Yes (Death, Hospitalization)
  Sender: FDA-Public Use
  Company Number: 2010AL000111

PATIENT
  Age: 62 Year
  Sex: Female

DRUGS (2)
  1. METFORMIN HCL [Suspect]
  2. TROGLITAZONE [Concomitant]

REACTIONS (7)
  - ACIDOSIS [None]
  - CARDIAC ARREST [None]
  - HEPATIC FAILURE [None]
  - PNEUMONIA [None]
  - PULMONARY OEDEMA [None]
  - RENAL FAILURE ACUTE [None]
  - RESPIRATORY FAILURE [None]
